FAERS Safety Report 7757764-9 (Version None)
Quarter: 2011Q3

REPORT INFORMATION
  Report Type: 
  Country: None (occurrence: None)
  Receive Date: 20110918
  Receipt Date: 20110907
  Transmission Date: 20111222
  Serious: Yes (Hospitalization)
  Sender: FDA-Public Use
  Company Number: US-ASTRAZENECA-2011SE53708

PATIENT
  Age: 26 Year
  Sex: Male

DRUGS (7)
  1. ATIVAN [Concomitant]
     Indication: ANXIETY
     Dates: start: 20090205
  2. ATIVAN [Concomitant]
     Route: 048
     Dates: start: 20090813
  3. BENADRYL [Concomitant]
     Route: 048
     Dates: start: 20090813
  4. ABILIFY [Concomitant]
     Route: 048
     Dates: start: 20090813
  5. QUETIAPINE [Suspect]
     Route: 048
     Dates: start: 20090209
  6. DEPAKOTE [Concomitant]
     Route: 048
     Dates: start: 20090813
  7. QUETIAPINE [Suspect]
     Indication: SCHIZOPHRENIA
     Route: 048
     Dates: end: 20090802

REACTIONS (1)
  - PSYCHOTIC DISORDER [None]
